FAERS Safety Report 4362940-1 (Version None)
Quarter: 2004Q2

REPORT INFORMATION
  Report Type: 
  Country: None (occurrence: None)
  Receive Date: 20040518
  Receipt Date: 20040507
  Transmission Date: 20050107
  Serious: Yes (Hospitalization)
  Sender: FDA-Public Use
  Company Number: 2004PK00834

PATIENT
  Age: 73 Year
  Sex: Male
  Weight: 88 kg

DRUGS (15)
  1. METOPROLOL SUCCINATE [Suspect]
     Indication: HYPERTENSION
     Dosage: 95 MG BID PO
     Route: 048
  2. ASPIRIN [Suspect]
     Indication: CORONARY ARTERY DISEASE
     Dosage: 100 MG DAILY PO
     Route: 048
     Dates: end: 20040204
  3. OXYGESIC [Suspect]
     Indication: POLYNEUROPATHY
     Dosage: 80 MG DAILY PO
     Route: 048
     Dates: start: 20030101
  4. ACTRAPID HUMAN [Concomitant]
  5. ALNA [Concomitant]
  6. OMEPRAZOLE [Concomitant]
  7. FINLEPSIN [Concomitant]
  8. ISCOVER [Concomitant]
  9. ISOKET [Concomitant]
  10. KREON [Concomitant]
  11. LORZAAR [Concomitant]
  12. MILGAMMA [Concomitant]
  13. PROTAPHANE MC [Concomitant]
  14. SORTIS [Concomitant]
  15. TROMLIPON [Concomitant]

REACTIONS (3)
  - DRUG INTERACTION [None]
  - GASTRITIS [None]
  - GASTROENTERITIS HELICOBACTER [None]
